FAERS Safety Report 8921753 (Version 1)
Quarter: 2012Q4

REPORT INFORMATION
  Report Type: Report from Study
  Country: JP (occurrence: JP)
  Receive Date: 20121121
  Receipt Date: 20121121
  Transmission Date: 20130627
  Serious: Yes (Other)
  Sender: FDA-Public Use
  Company Number: JP-VERTEX PHARMACEUTICAL INC.-AE-2012-007670

PATIENT
  Age: 44 Year
  Sex: Female

DRUGS (8)
  1. TELAVIC [Suspect]
     Indication: HEPATITIS C
     Route: 048
     Dates: start: 20120216, end: 20120225
  2. TELAVIC [Suspect]
     Dosage: 1000 mg, UNK
     Route: 048
     Dates: start: 20120226, end: 20120329
  3. REBETOL [Suspect]
     Indication: CHRONIC HEPATITIS C
     Route: 048
     Dates: start: 20120216, end: 20120304
  4. REBETOL [Suspect]
     Route: 048
     Dates: start: 20120305, end: 20120425
  5. REBETOL [Suspect]
     Route: 048
     Dates: start: 20120426
  6. PEGINTERFERON ALFA-2B [Suspect]
     Indication: CHRONIC HEPATITIS C
     Dosage: 1.3 ?g/kg, UNK
     Route: 051
     Dates: start: 20120216, end: 20120726
  7. MUCOSTA [Concomitant]
     Route: 048
     Dates: start: 20120412
  8. GASTER [Concomitant]
     Route: 048
     Dates: end: 20120411

REACTIONS (1)
  - White blood cell count decreased [Not Recovered/Not Resolved]
